FAERS Safety Report 23240366 (Version 1)
Quarter: 2023Q4

REPORT INFORMATION
  Report Type: Spontaneous
  Country: US (occurrence: None)
  Receive Date: 20231128
  Receipt Date: 20231128
  Transmission Date: 20240110
  Serious: Yes (Life-Threatening, Hospitalization, Disabling)
  Sender: FDA-Public Use
  Company Number: None

PATIENT
  Age: 53 Year
  Sex: Male
  Weight: 123.75 kg

DRUGS (11)
  1. MOUNJARO [Suspect]
     Active Substance: TIRZEPATIDE
     Indication: Type 2 diabetes mellitus
     Dosage: OTHER FREQUENCY : WEEKLY INJECTION;?OTHER ROUTE : INJECTION;?
     Route: 050
     Dates: start: 20230501, end: 20230715
  2. LEVOTHYROXINE [Concomitant]
     Active Substance: LEVOTHYROXINE
  3. CLOPIDOGREL [Concomitant]
     Active Substance: CLOPIDOGREL BISULFATE
  4. AMLODIPINE BESYLATE [Concomitant]
     Active Substance: AMLODIPINE BESYLATE
  5. LISINOPRIL [Concomitant]
     Active Substance: LISINOPRIL
  6. ATENOLOL [Concomitant]
     Active Substance: ATENOLOL
  7. METFORMIN [Concomitant]
     Active Substance: METFORMIN HYDROCHLORIDE
  8. Atvortastin [Concomitant]
  9. Fluoxitene [Concomitant]
  10. DEPAKOTE [Concomitant]
     Active Substance: DIVALPROEX SODIUM
  11. FERROUS SULFATE [Concomitant]
     Active Substance: FERROUS SULFATE

REACTIONS (19)
  - Mental disorder [None]
  - Hypoglycaemia [None]
  - Loss of consciousness [None]
  - Feeling of body temperature change [None]
  - Seizure [None]
  - Transient ischaemic attack [None]
  - Cerebrovascular accident [None]
  - Blood pressure abnormal [None]
  - Asthenia [None]
  - Confusional state [None]
  - Amnesia [None]
  - Loss of personal independence in daily activities [None]
  - Mania [None]
  - Agitation [None]
  - Impaired driving ability [None]
  - Disturbance in social behaviour [None]
  - Movement disorder [None]
  - Legal problem [None]
  - Aggression [None]

NARRATIVE: CASE EVENT DATE: 20230730
